FAERS Safety Report 5316913-2 (Version None)
Quarter: 2007Q2

REPORT INFORMATION
  Report Type: 
  Country: None (occurrence: None)
  Receive Date: 20070504
  Receipt Date: 20070503
  Transmission Date: 20071010
  Serious: Yes (Hospitalization)
  Sender: FDA-Public Use
  Company Number: FR-GLAXOSMITHKLINE-B0469129A

PATIENT
  Age: 43 Year
  Sex: Female

DRUGS (3)
  1. IMIGRANE [Suspect]
     Indication: MIGRAINE
     Route: 045
     Dates: start: 20060213
  2. ZOMIG [Suspect]
     Indication: MIGRAINE
     Route: 065
  3. RIVOTRIL [Suspect]
     Indication: MIGRAINE
     Dosage: 2.5MGML UNKNOWN
     Route: 048
     Dates: start: 20060213

REACTIONS (4)
  - ARTERY DISSECTION [None]
  - MIGRAINE [None]
  - NECK PAIN [None]
  - OVERDOSE [None]
